FAERS Safety Report 8392744-4 (Version None)
Quarter: 2012Q2

REPORT INFORMATION
  Report Type: 
  Country: None (occurrence: None)
  Receive Date: 20120529
  Receipt Date: 20120522
  Transmission Date: 20120825
  Serious: Yes (Death, Life-Threatening, Hospitalization)
  Sender: FDA-Public Use
  Company Number: FR-ASTRAZENECA-2012SE32871

PATIENT
  Age: 59 Year
  Sex: Male

DRUGS (8)
  1. LEXOMIL [Concomitant]
     Route: 048
  2. PANTOPRAZOLE [Concomitant]
     Route: 048
  3. PHENOBARBITAL TAB [Concomitant]
     Indication: EPILEPSY
     Route: 048
  4. VASTAREL [Concomitant]
     Route: 048
  5. PERMIXON [Concomitant]
     Route: 048
  6. PHENYTOIN SODIUM [Concomitant]
     Indication: EPILEPSY
     Route: 048
  7. QUETIAPINE FUMARATE [Suspect]
     Indication: DEPRESSION
     Route: 048
     Dates: start: 20120329
  8. ESCITALOPRAM [Concomitant]
     Indication: DEPRESSION
     Route: 048

REACTIONS (9)
  - CARDIO-RESPIRATORY ARREST [None]
  - INTENTIONAL DRUG MISUSE [None]
  - BRAIN DEATH [None]
  - CRANIOCEREBRAL INJURY [None]
  - SUICIDAL IDEATION [None]
  - STATUS EPILEPTICUS [None]
  - AGITATION [None]
  - FALL [None]
  - PULMONARY EMBOLISM [None]
